FAERS Safety Report 11282411 (Version 1)
Quarter: 2015Q3

REPORT INFORMATION
  Report Type: Spontaneous
  Country: US (occurrence: None)
  Receive Date: 20150716
  Receipt Date: 20150716
  Transmission Date: 20151125
  Serious: Yes (Death, Other)
  Sender: FDA-Public Use
  Company Number: ADR-205-01317

PATIENT
  Age: 46 Year
  Sex: Female

DRUGS (2)
  1. BACLOFEN INTRATHECAL [Suspect]
     Active Substance: BACLOFEN
     Indication: MUSCLE SPASTICITY
  2. MULTIPLE UNSPECIFIED DRUGS - PILL FORM, ORAL [Suspect]
     Active Substance: UNSPECIFIED INGREDIENT

REACTIONS (4)
  - Exposure via ingestion [None]
  - Overdose [None]
  - Accidental overdose [None]
  - Completed suicide [None]

NARRATIVE: CASE EVENT DATE: 20150502
